FAERS Safety Report 22060584 (Version 1)
Quarter: 2023Q1

REPORT INFORMATION
  Report Type: Spontaneous
  Country: US (occurrence: None)
  Receive Date: 20230303
  Receipt Date: 20230303
  Transmission Date: 20230418
  Serious: Yes (Death)
  Sender: FDA-Public Use
  Company Number: None

PATIENT
  Age: 73 Year
  Sex: Female
  Weight: 84.1 kg

DRUGS (1)
  1. MIRCERA [Suspect]
     Active Substance: METHOXY POLYETHYLENE GLYCOL-EPOETIN BETA
     Dosage: OTHER FREQUENCY : EVERY 2 WEEKS;?
     Route: 040
     Dates: start: 20230216, end: 20230216

REACTIONS (5)
  - Unresponsive to stimuli [None]
  - Respiratory arrest [None]
  - Cardiac arrest [None]
  - Blood pressure diastolic increased [None]
  - Heart rate increased [None]

NARRATIVE: CASE EVENT DATE: 20230216
